FAERS Safety Report 10475525 (Version 1)
Quarter: 2014Q3

REPORT INFORMATION
  Report Type: Spontaneous
  Country: AR (occurrence: AR)
  Receive Date: 20140925
  Receipt Date: 20140925
  Transmission Date: 20150326
  Serious: Yes (Other)
  Sender: FDA-Public Use
  Company Number: AR-BRISTOL-MYERS SQUIBB COMPANY-21411590

PATIENT
  Age: 71 Year
  Sex: Male

DRUGS (1)
  1. APIXABAN [Suspect]
     Active Substance: APIXABAN
     Dates: start: 20140820

REACTIONS (3)
  - Gastrointestinal haemorrhage [Unknown]
  - Angiodysplasia [Unknown]
  - Polyp [Unknown]

NARRATIVE: CASE EVENT DATE: 20140903
